FAERS Safety Report 8571694-4 (Version None)
Quarter: 2012Q3

REPORT INFORMATION
  Report Type: 
  Country: None (occurrence: None)
  Receive Date: 20120806
  Receipt Date: 20120727
  Transmission Date: 20120928
  Serious: Yes (Hospitalization)
  Sender: FDA-Public Use
  Company Number: US-JNJFOC-20120712217

PATIENT
  Sex: Male
  Weight: 70.5 kg

DRUGS (9)
  1. HUMIRA [Suspect]
     Indication: PRODUCT USED FOR UNKNOWN INDICATION
     Dates: start: 20070901
  2. ERGOCALCIFEROL [Concomitant]
  3. FOLIC ACID [Concomitant]
  4. REMICADE [Suspect]
     Indication: CROHN'S DISEASE
     Route: 042
     Dates: start: 20061113
  5. METHOTREXATE [Suspect]
     Indication: PRODUCT USED FOR UNKNOWN INDICATION
  6. FERROUS SULFATE TAB [Concomitant]
  7. VITAMIN D [Concomitant]
  8. ANTIBIOTICS [Suspect]
     Indication: INFLAMMATORY BOWEL DISEASE
  9. CALCIUM CARBONATE [Concomitant]

REACTIONS (2)
  - ANAL ABSCESS [None]
  - CROHN'S DISEASE [None]
